FAERS Safety Report 13554810 (Version 1)
Quarter: 2017Q2

REPORT INFORMATION
  Report Type: Spontaneous
  Country: US (occurrence: US)
  Receive Date: 20170516
  Receipt Date: 20170516
  Transmission Date: 20170830
  Serious: No
  Sender: FDA-Public Use
  Company Number: None

PATIENT
  Age: 53 Year
  Sex: Female

DRUGS (1)
  1. GILENYA [Suspect]
     Active Substance: FINGOLIMOD HYDROCHLORIDE
     Indication: MULTIPLE SCLEROSIS
     Route: 048
     Dates: start: 20170223

REACTIONS (4)
  - Oropharyngeal pain [None]
  - Eye infection [None]
  - Headache [None]
  - Viral upper respiratory tract infection [None]

NARRATIVE: CASE EVENT DATE: 20170309
